FAERS Safety Report 23426601 (Version 1)
Quarter: 2024Q1

REPORT INFORMATION
  Report Type: Report from Study
  Country: CN (occurrence: CN)
  Receive Date: 20240122
  Receipt Date: 20240122
  Transmission Date: 20240410
  Serious: Yes (Hospitalization)
  Sender: FDA-Public Use
  Company Number: CN-TAKEDA-2024TUS004291

PATIENT
  Age: 20 Year
  Sex: Male

DRUGS (8)
  1. VEDOLIZUMAB [Suspect]
     Active Substance: VEDOLIZUMAB
     Indication: Colitis ulcerative
     Dosage: 300 MILLIGRAM
     Route: 042
     Dates: start: 20230103
  2. MESALAMINE [Concomitant]
     Active Substance: MESALAMINE
     Indication: Inflammatory bowel disease
     Dosage: 1000 MILLIGRAM, QID
     Route: 048
     Dates: start: 20220212
  3. IRON SUCROSE [Concomitant]
     Active Substance: IRON SUCROSE
     Dosage: 200 MILLIGRAM, QD
     Route: 042
     Dates: start: 20230122, end: 20230128
  4. IRON SUCROSE [Concomitant]
     Active Substance: IRON SUCROSE
     Dosage: 200 MILLIGRAM, QD
     Route: 042
     Dates: start: 20230816, end: 20230820
  5. TOFACITINIB CITRATE [Concomitant]
     Active Substance: TOFACITINIB CITRATE
     Indication: Inflammatory bowel disease
     Dosage: UNK UNK, BID
     Route: 048
     Dates: start: 20230731, end: 20230814
  6. CALCIUM CARBONATE\CHOLECALCIFEROL [Concomitant]
     Active Substance: CALCIUM CARBONATE\CHOLECALCIFEROL
     Indication: Nutritional supplementation
     Dosage: UNK UNK, QD
     Route: 048
     Dates: start: 20230122
  7. CALCITRIOL [Concomitant]
     Active Substance: CALCITRIOL
     Indication: Nutritional supplementation
     Dosage: 0.25 MICROGRAM, BID
     Route: 048
     Dates: start: 20230122
  8. FERRIC POLYSACCHARIDE COMPLEX [Concomitant]
     Active Substance: FERRIC POLYSACCHARIDE COMPLEX
     Dosage: 300 MILLIGRAM, QD
     Route: 048
     Dates: start: 20230122

REACTIONS (1)
  - Anaemia [Recovered/Resolved]

NARRATIVE: CASE EVENT DATE: 20230816
